FAERS Safety Report 6414093-3 (Version None)
Quarter: 2009Q4

REPORT INFORMATION
  Report Type: 
  Country: None (occurrence: None)
  Receive Date: 20091026
  Receipt Date: 20091016
  Transmission Date: 20100525
  Serious: Yes (Life-Threatening, Hospitalization, Disabling)
  Sender: FDA-Public Use
  Company Number: DK-ABBOTT-09P-044-0603144-00

PATIENT
  Sex: Male
  Weight: 100 kg

DRUGS (1)
  1. HUMIRA [Suspect]
     Indication: DEMYELINATION
     Route: 058
     Dates: start: 20050630, end: 20090601

REACTIONS (2)
  - COGNITIVE DISORDER [None]
  - LEUKOENCEPHALOPATHY [None]
